FAERS Safety Report 4280076-5 (Version None)
Quarter: 2004Q1

REPORT INFORMATION
  Report Type: 
  Country: None (occurrence: None)
  Receive Date: 20040126
  Receipt Date: 20040112
  Transmission Date: 20041129
  Serious: Yes (Other)
  Sender: FDA-Public Use
  Company Number: 2004193762ES

PATIENT
  Age: 65 Year
  Sex: Female

DRUGS (2)
  1. AROMASIL(EXEMESTANE)  TABLET [Suspect]
     Indication: BREAST CANCER
     Dosage: 25 MG, QD, ORAL
     Route: 048
  2. TAMOXIFEN [Concomitant]

REACTIONS (3)
  - HEPATITIS TOXIC [None]
  - JAUNDICE CHOLESTATIC [None]
  - PRURITUS [None]
